FAERS Safety Report 7258526-1 (Version None)
Quarter: 2011Q1

REPORT INFORMATION
  Report Type: 
  Country: None (occurrence: None)
  Receive Date: 20110129
  Receipt Date: 20100625
  Transmission Date: 20110831
  Serious: Yes (Other)
  Sender: FDA-Public Use
  Company Number: US-ABBOTT-10P-163-0647681-00

PATIENT
  Sex: Female
  Weight: 61.29 kg

DRUGS (3)
  1. SONATA [Concomitant]
     Indication: PRODUCT USED FOR UNKNOWN INDICATION
  2. HUMIRA [Suspect]
     Indication: ARTHRITIS
     Route: 058
     Dates: start: 20050101
  3. LORAZEPAM [Concomitant]
     Indication: PRODUCT USED FOR UNKNOWN INDICATION

REACTIONS (7)
  - OEDEMA PERIPHERAL [None]
  - ABDOMINAL PAIN [None]
  - URINE OUTPUT DECREASED [None]
  - ABDOMINAL DISTENSION [None]
  - COLONIC POLYP [None]
  - NECK PAIN [None]
  - NAUSEA [None]
